FAERS Safety Report 19380157 (Version 1)
Quarter: 2021Q2

REPORT INFORMATION
  Report Type: Spontaneous
  Country: US (occurrence: US)
  Receive Date: 20210607
  Receipt Date: 20210607
  Transmission Date: 20210717
  Serious: Yes (Other)
  Sender: FDA-Public Use
  Company Number: US-AUROBINDO-AUR-APL-2021-022783

PATIENT
  Age: 19 Year
  Sex: Female
  Weight: 100 kg

DRUGS (10)
  1. HEPARIN [Concomitant]
     Active Substance: HEPARIN SODIUM
     Indication: INTRACRANIAL PRESSURE INCREASED
     Dosage: 18 U/KG/H
     Route: 065
  2. ROCURONIUM BROMIDE. [Suspect]
     Active Substance: ROCURONIUM BROMIDE
     Indication: INTRACRANIAL PRESSURE INCREASED
     Dosage: 50 MILLIGRAM, BOLUSES
     Route: 065
  3. FENTANYL. [Suspect]
     Active Substance: FENTANYL
     Dosage: 2050 MICROGRAM, 24 DIVIDED DOSES
     Route: 065
  4. SODIUM CHLORIDE. [Suspect]
     Active Substance: SODIUM CHLORIDE
     Indication: INTRACRANIAL PRESSURE INCREASED
     Dosage: 120 MILLIEQUIVALENT, BOLUS OF 23.4% HYPERTONIC
     Route: 065
  5. ROCURONIUM BROMIDE. [Suspect]
     Active Substance: ROCURONIUM BROMIDE
     Dosage: 100 MILLIGRAM, BOLUSES
     Route: 065
  6. MIDAZOLAM. [Suspect]
     Active Substance: MIDAZOLAM
     Indication: INTRACRANIAL PRESSURE INCREASED
     Dosage: 10 MILLIGRAM, EVERY HOUR
     Route: 065
  7. FENTANYL. [Suspect]
     Active Substance: FENTANYL
     Indication: INTRACRANIAL PRESSURE INCREASED
     Dosage: 0.5 MICROGRAM/KILOGRAM, EVERY HOUR
     Route: 065
  8. FENTANYL. [Suspect]
     Active Substance: FENTANYL
     Dosage: 1.5 MICROGRAM/KILOGRAM, EVERY HOUR
     Route: 065
  9. MIDAZOLAM. [Suspect]
     Active Substance: MIDAZOLAM
     Dosage: 47 MILLIGRAM, TOTAL IN 13 DIVIDED DOSES
     Route: 065
  10. SODIUM CHLORIDE. [Suspect]
     Active Substance: SODIUM CHLORIDE
     Indication: INTRACRANIAL PRESSURE INCREASED
     Dosage: 75 MILLILITER, EVERY HOUR
     Route: 065

REACTIONS (1)
  - Drug ineffective [Unknown]
